FAERS Safety Report 21103137 (Version 2)
Quarter: 2022Q3

REPORT INFORMATION
  Report Type: Report from Study
  Country: BR (occurrence: BR)
  Receive Date: 20220720
  Receipt Date: 20220925
  Transmission Date: 20221026
  Serious: Yes (Hospitalization)
  Sender: FDA-Public Use
  Company Number: BR-BIOGEN-2020BI00833920

PATIENT
  Sex: Female
  Weight: 70 kg

DRUGS (24)
  1. AVONEX PEN [Suspect]
     Active Substance: INTERFERON BETA-1A
     Indication: Multiple sclerosis
     Route: 050
     Dates: start: 20190612, end: 201911
  2. AVONEX PEN [Suspect]
     Active Substance: INTERFERON BETA-1A
     Route: 050
     Dates: start: 2017, end: 2021
  3. AVONEX PEN [Suspect]
     Active Substance: INTERFERON BETA-1A
     Route: 050
     Dates: start: 202206
  4. AVONEX PEN [Suspect]
     Active Substance: INTERFERON BETA-1A
  5. CLOPIDOGREL [Concomitant]
     Active Substance: CLOPIDOGREL BISULFATE
     Indication: Blood viscosity increased
     Route: 050
     Dates: start: 2013
  6. CANDESARTAN [Concomitant]
     Active Substance: CANDESARTAN
     Indication: Cardiac disorder
     Route: 050
     Dates: start: 2013
  7. ASPIRIN [Concomitant]
     Active Substance: ASPIRIN
     Indication: Cardiac disorder
     Route: 050
     Dates: start: 2013
  8. AMIODARONE HYDROCHLORIDE [Concomitant]
     Active Substance: AMIODARONE HYDROCHLORIDE
     Indication: Cardiac disorder
     Route: 050
     Dates: start: 2013
  9. MONOCORDIL [Concomitant]
     Active Substance: ISOSORBIDE MONONITRATE
     Indication: Product used for unknown indication
     Route: 050
  10. HYDROCHLOROTHIAZIDE [Concomitant]
     Active Substance: HYDROCHLOROTHIAZIDE
     Indication: Product used for unknown indication
     Route: 050
  11. ALDACTONE [Concomitant]
     Active Substance: SPIRONOLACTONE
     Indication: Renal disorder
     Route: 050
     Dates: start: 2000
  12. PANTOPRAZOLE SODIUM [Concomitant]
     Active Substance: PANTOPRAZOLE SODIUM
     Indication: Product used for unknown indication
     Route: 050
  13. DOMPERIDONE [Concomitant]
     Active Substance: DOMPERIDONE
     Indication: Gastric disorder
     Route: 050
  14. LEVOTHYROXINE [Concomitant]
     Active Substance: LEVOTHYROXINE
     Indication: Thyroid disorder
     Route: 050
     Dates: start: 2013
  15. FUROSEMIDE [Concomitant]
     Active Substance: FUROSEMIDE
     Indication: Product used for unknown indication
     Route: 050
  16. CARVEDILOL [Concomitant]
     Active Substance: CARVEDILOL
     Indication: Arrhythmia
     Route: 050
     Dates: start: 2013
  17. AMITRIPTYLINE HYDROCHLORIDE [Concomitant]
     Active Substance: AMITRIPTYLINE HYDROCHLORIDE
     Indication: Product used for unknown indication
     Route: 050
  18. GLICLAZIDE [Concomitant]
     Active Substance: GLICLAZIDE
     Indication: Diabetes mellitus
     Route: 050
     Dates: start: 1996
  19. DIAZEPAM [Concomitant]
     Active Substance: DIAZEPAM
     Indication: Anxiety
     Route: 050
  20. ACETAMINOPHEN [Concomitant]
     Active Substance: ACETAMINOPHEN
     Indication: Pain
     Route: 050
  21. MELOXICAM [Concomitant]
     Active Substance: MELOXICAM
     Indication: Pain
     Route: 050
  22. AMITRIPTYLINE [Concomitant]
     Active Substance: AMITRIPTYLINE
     Indication: Nervousness
     Route: 050
     Dates: start: 1990
  23. VITAMIN D [Concomitant]
     Active Substance: VITAMIN D NOS
     Indication: Supplementation therapy
     Route: 050
     Dates: start: 2020
  24. ATORVASTATIN [Concomitant]
     Active Substance: ATORVASTATIN
     Indication: Blood cholesterol
     Route: 050
     Dates: start: 2019

REACTIONS (16)
  - Head injury [Recovered/Resolved]
  - Amnesia [Recovered/Resolved]
  - Rib fracture [Recovered/Resolved]
  - Syncope [Recovered/Resolved]
  - Injection site haemorrhage [Unknown]
  - Injection site induration [Not Recovered/Not Resolved]
  - Injection site discolouration [Unknown]
  - Skin laceration [Unknown]
  - Limb injury [Unknown]
  - Fall [Recovered/Resolved]
  - Multiple sclerosis [Unknown]
  - Injection site haematoma [Not Recovered/Not Resolved]
  - Weight decreased [Unknown]
  - Injection site pain [Unknown]
  - Asthenia [Unknown]
  - Pain [Recovered/Resolved]

NARRATIVE: CASE EVENT DATE: 20190101
